FAERS Safety Report 14798496 (Version 3)
Quarter: 2018Q3

REPORT INFORMATION
  Report Type: Spontaneous
  Country: GR (occurrence: GR)
  Receive Date: 20180424
  Receipt Date: 20180721
  Transmission Date: 20181010
  Serious: Yes (Hospitalization)
  Sender: FDA-Public Use
  Company Number: GR-ACCORD-066131

PATIENT
  Age: 68 Year
  Sex: Male

DRUGS (4)
  1. EPLERENONE. [Concomitant]
     Active Substance: EPLERENONE
  2. FUROSEMIDE. [Suspect]
     Active Substance: FUROSEMIDE
     Indication: PRODUCT USED FOR UNKNOWN INDICATION
     Dosage: ALSO RECEIVED 80 MG ORAL AND 80 MG INTRAVENOUS BOLUS
     Route: 048
  3. ENALAPRIL [Suspect]
     Active Substance: ENALAPRIL
     Indication: PRODUCT USED FOR UNKNOWN INDICATION
     Dosage: 2 DAYS INTERVAL
     Route: 048
  4. CARVEDILOL/CARVEDILOL HYDROCHLODRIDE [Suspect]
     Active Substance: CARVEDILOL HYDROCHLORIDE
     Indication: PRODUCT USED FOR UNKNOWN INDICATION
     Dosage: DOSE REDUCTION BY 50%
     Route: 048

REACTIONS (11)
  - Dyspnoea at rest [Recovering/Resolving]
  - Drug resistance [Unknown]
  - Blood potassium decreased [None]
  - Condition aggravated [Recovering/Resolving]
  - Oedema peripheral [Recovering/Resolving]
  - Weight increased [Recovering/Resolving]
  - Cardiac failure acute [Recovering/Resolving]
  - Cardiac dysfunction [Recovering/Resolving]
  - Cardiac failure [None]
  - Renal impairment [Recovering/Resolving]
  - Therapy non-responder [Unknown]
